FAERS Safety Report 21623305 (Version 1)
Quarter: 2022Q4

REPORT INFORMATION
  Report Type: Report from Study
  Country: US (occurrence: US)
  Receive Date: 20221121
  Receipt Date: 20221121
  Transmission Date: 20230113
  Serious: Yes (Hospitalization)
  Sender: FDA-Public Use
  Company Number: US-EXELIXIS-CABO-22057328

PATIENT
  Sex: Female

DRUGS (2)
  1. CABOMETYX [Suspect]
     Active Substance: CABOZANTINIB S-MALATE
     Indication: Renal cancer
     Dosage: 40 MG, QD
     Route: 048
     Dates: end: 20221107
  2. CABOMETYX [Suspect]
     Active Substance: CABOZANTINIB S-MALATE
     Dosage: 40 MG, QD
     Route: 048
     Dates: start: 20221112

REACTIONS (12)
  - Altered state of consciousness [Unknown]
  - Dysphagia [Unknown]
  - Oral pain [Unknown]
  - Muscle spasms [Unknown]
  - Weight decreased [Unknown]
  - Rash [Unknown]
  - Headache [Unknown]
  - Arthralgia [Unknown]
  - Gastrointestinal motility disorder [Recovering/Resolving]
  - Nausea [Unknown]
  - Vomiting [Unknown]
  - Bone pain [Unknown]
